FAERS Safety Report 18526656 (Version 2)
Quarter: 2021Q1

REPORT INFORMATION
  Report Type: Spontaneous
  Country: US (occurrence: US)
  Receive Date: 20201120
  Receipt Date: 20210206
  Transmission Date: 20210419
  Serious: Yes (Other)
  Sender: FDA-Public Use
  Company Number: US-BRISTOL-MYERS SQUIBB COMPANY-BMS-2020-096263

PATIENT
  Age: 74 Year
  Sex: Female

DRUGS (7)
  1. AZATHIOPRINE. [Suspect]
     Active Substance: AZATHIOPRINE
     Indication: DERMATOMYOSITIS
     Route: 065
  2. PREDNISONE. [Suspect]
     Active Substance: PREDNISONE
     Dosage: 10 MILLIGRAM, QD
     Route: 048
  3. TRIAMCINOLONE ACETONIDE. [Suspect]
     Active Substance: TRIAMCINOLONE ACETONIDE
     Indication: PRODUCT USED FOR UNKNOWN INDICATION
     Dosage: 1 ML( 40 MG/1 CC) SUBTENONS QD
     Route: 065
  4. PREDNISONE. [Suspect]
     Active Substance: PREDNISONE
     Indication: RETINITIS VIRAL
     Route: 048
  5. IMMUNOGLOBULINS [Concomitant]
     Indication: DERMATOMYOSITIS
     Route: 042
  6. PREDNIFIL [PREDNISOLONE ACETATE] [Suspect]
     Active Substance: PREDNISOLONE ACETATE
     Indication: IRITIS
     Dosage: 1 PERCENT
     Route: 061
  7. VALACYCLOVIR [Concomitant]
     Active Substance: VALACYCLOVIR HYDROCHLORIDE
     Indication: RETINITIS VIRAL
     Dosage: 1 GRAM 3 TIMES  DAILY
     Route: 065

REACTIONS (5)
  - Uveitis [Recovering/Resolving]
  - Eye infection toxoplasmal [Recovering/Resolving]
  - Rhegmatogenous retinal detachment [Recovering/Resolving]
  - Tractional retinal detachment [Recovering/Resolving]
  - Intentional product use issue [Unknown]
